FAERS Safety Report 25941945 (Version 1)
Quarter: 2025Q4

REPORT INFORMATION
  Report Type: Spontaneous
  Country: EU (occurrence: EU)
  Receive Date: 20251020
  Receipt Date: 20251020
  Transmission Date: 20260117
  Serious: Yes (Other)
  Sender: NORDIC PHARMA
  Company Number: None

PATIENT
  Age: 56 Year
  Sex: Male
  Weight: 68 kg

DRUGS (8)
  1. METHOTREXATE [Suspect]
     Active Substance: METHOTREXATE
     Indication: Rheumatoid arthritis
     Route: 058
     Dates: start: 20171129, end: 201712
  2. METHOTREXATE [Suspect]
     Active Substance: METHOTREXATE
     Indication: Rheumatoid arthritis
     Route: 058
     Dates: start: 201712, end: 202110
  3. METHOTREXATE [Suspect]
     Active Substance: METHOTREXATE
     Indication: Rheumatoid arthritis
     Route: 058
     Dates: start: 20211027
  4. METHOTREXATE [Suspect]
     Active Substance: METHOTREXATE
     Indication: Rheumatoid arthritis
     Route: 058
     Dates: start: 20220607, end: 20220909
  5. BENEPALI 50 mg, solution for injection in prefilled syringe [Concomitant]
     Indication: Rheumatoid arthritis
     Route: 058
     Dates: start: 20220607, end: 20220909
  6. RINVOQ 15 mg, extended-release tablet [Concomitant]
     Indication: Rheumatoid arthritis
     Route: 048
     Dates: start: 20220909
  7. ATORVASTATIN [Concomitant]
     Active Substance: ATORVASTATIN
     Indication: Dyslipidaemia
     Route: 065
     Dates: start: 202306
  8. CORTICOSTEROID NOS [Concomitant]
     Active Substance: CORTICOSTEROID NOS
     Indication: Rheumatoid arthritis
     Route: 065
     Dates: start: 20171129

REACTIONS (1)
  - Sebaceous adenoma [Recovered/Resolved]

NARRATIVE: CASE EVENT DATE: 20250707
